FAERS Safety Report 8416470-8 (Version None)
Quarter: 2012Q2

REPORT INFORMATION
  Report Type: 
  Country: None (occurrence: None)
  Receive Date: 20120606
  Receipt Date: 20120601
  Transmission Date: 20120825
  Serious: Yes (Life-Threatening, Other)
  Sender: FDA-Public Use
  Company Number: RO-BAYER-2012-052986

PATIENT
  Age: 28 Year
  Sex: Female

DRUGS (1)
  1. YAZ [Suspect]
     Indication: CONTRACEPTION
     Dosage: UNK
     Route: 048
     Dates: start: 20120507, end: 20120517

REACTIONS (12)
  - TREMOR [None]
  - VAGINAL HAEMORRHAGE [None]
  - ALTERED STATE OF CONSCIOUSNESS [None]
  - VOMITING [None]
  - BRADYKINESIA [None]
  - SOMNOLENCE [None]
  - DEPRESSION [None]
  - BODY TEMPERATURE FLUCTUATION [None]
  - DYSPNOEA [None]
  - CHILLS [None]
  - NAUSEA [None]
  - PARAESTHESIA [None]
